FAERS Safety Report 12056870 (Version 1)
Quarter: 2016Q1

REPORT INFORMATION
  Report Type: Spontaneous
  Country: JP (occurrence: JP)
  Receive Date: 20160209
  Receipt Date: 20160209
  Transmission Date: 20160526
  Serious: Yes (Other)
  Sender: FDA-Public Use
  Company Number: JP-PFIZER INC-2016067469

PATIENT
  Weight: 36 kg

DRUGS (1)
  1. ZITHROMAC [Suspect]
     Active Substance: AZITHROMYCIN DIHYDRATE
     Dosage: UNK
     Route: 041

REACTIONS (3)
  - Blood creatinine increased [Unknown]
  - Haemorrhage [Unknown]
  - Blood urea increased [Unknown]

NARRATIVE: CASE EVENT DATE: 201511
